FAERS Safety Report 5384259-2 (Version None)
Quarter: 2007Q3

REPORT INFORMATION
  Report Type: 
  Country: None (occurrence: None)
  Receive Date: 20070703
  Receipt Date: 20060825
  Transmission Date: 20080115
  Serious: Yes (Hospitalization)
  Sender: FDA-Public Use
  Company Number: 2006-BP-09984BP

PATIENT
  Age: 83 Year
  Sex: Female
  Weight: 36.36 kg

DRUGS (12)
  1. MIRAPEX [Suspect]
     Indication: PARKINSON'S DISEASE
     Dosage: 2 MG (0.5 MG,4 IN 1 D),PO ; 1.5 MG (0.5 MG,3 IN 1 D),PO
     Route: 048
     Dates: end: 20060505
  2. MIRAPEX [Suspect]
     Indication: PARKINSON'S DISEASE
     Dosage: 2 MG (0.5 MG,4 IN 1 D),PO ; 1.5 MG (0.5 MG,3 IN 1 D),PO
     Route: 048
     Dates: start: 20060506
  3. AMANTADINE HCL [Suspect]
     Indication: PARKINSON'S DISEASE
     Dosage: (100 MG),PO
     Route: 048
     Dates: start: 20060401, end: 20060523
  4. SINEMET [Suspect]
     Indication: PARKINSON'S DISEASE
     Dosage: (25/250 MG QID-TID),PO
     Route: 048
  5. COMTAN [Suspect]
     Indication: PARKINSON'S DISEASE
     Dosage: 800 MG (200 MG, 4 IN 1 D),PO
     Route: 048
  6. PARCOPA [Suspect]
     Indication: PARKINSON'S DISEASE
     Dosage: SL
     Route: 060
  7. NORVASC [Concomitant]
  8. HYZAAR [Concomitant]
  9. DIGOXIN [Concomitant]
  10. PLAVIX [Concomitant]
  11. PLETAL (CILOSTAZOL) [Concomitant]
  12. ASPIRIN [Concomitant]

REACTIONS (5)
  - ABNORMAL DREAMS [None]
  - CONVULSION [None]
  - DELIRIUM [None]
  - DELUSION [None]
  - HALLUCINATION [None]
